FAERS Safety Report 9113865 (Version 2)
Quarter: 2013Q1

REPORT INFORMATION
  Report Type: Spontaneous
  Country: US (occurrence: US)
  Receive Date: 20130208
  Receipt Date: 20130312
  Transmission Date: 20140127
  Serious: Yes (Other)
  Sender: FDA-Public Use
  Company Number: US-B.I. PHARMACEUTICALS,INC./RIDGEFIELD-2013-BI-02975BP

PATIENT
  Age: 72 Year
  Sex: Male

DRUGS (2)
  1. PRADAXA [Suspect]
  2. PLAVIX [Concomitant]

REACTIONS (2)
  - Cholelithiasis [Unknown]
  - Cholecystitis [Unknown]
